FAERS Safety Report 11955555 (Version 2)
Quarter: 2016Q1

REPORT INFORMATION
  Report Type: Spontaneous
  Country: US (occurrence: US)
  Receive Date: 20160125
  Receipt Date: 20160202
  Transmission Date: 20160526
  Serious: No
  Sender: FDA-Public Use
  Company Number: US-ABBVIE-15K-163-1343861-00

PATIENT
  Age: 38 Year
  Sex: Female
  Weight: 79.45 kg

DRUGS (4)
  1. WELLBUTRIN [Concomitant]
     Active Substance: BUPROPION HYDROCHLORIDE
     Indication: PRODUCT USED FOR UNKNOWN INDICATION
  2. HUMIRA [Suspect]
     Active Substance: ADALIMUMAB
     Dosage: 1 WEEK LATER
     Route: 065
     Dates: end: 2014
  3. HUMIRA [Suspect]
     Active Substance: ADALIMUMAB
     Indication: PSORIASIS
     Route: 065
  4. HUMIRA [Suspect]
     Active Substance: ADALIMUMAB
     Dosage: 3 MONTHS LATER
     Route: 065
     Dates: start: 2014

REACTIONS (8)
  - Migraine [Recovered/Resolved]
  - Drug effect incomplete [Not Recovered/Not Resolved]
  - Vaginal infection [Recovered/Resolved]
  - Drug dose omission [Unknown]
  - Migraine [Recovered/Resolved]
  - Vaginal infection [Not Recovered/Not Resolved]
  - Psoriasis [Recovered/Resolved]
  - Vaginal infection [Recovered/Resolved]

NARRATIVE: CASE EVENT DATE: 2014
